FAERS Safety Report 4853776-3 (Version None)
Quarter: 2005Q4

REPORT INFORMATION
  Report Type: 
  Country: None (occurrence: None)
  Receive Date: 20051212
  Receipt Date: 20051006
  Transmission Date: 20060501
  Serious: Yes (Hospitalization, Other)
  Sender: FDA-Public Use
  Company Number: 2005138994

PATIENT
  Age: 62 Year
  Sex: Female
  Weight: 88.4514 kg

DRUGS (11)
  1. CELEBREX [Suspect]
     Indication: PAIN
     Dosage: 200 MG (200 MG, 1 IN 1 D), ORAL
     Route: 048
     Dates: start: 20050101, end: 20050201
  2. XANAX [Suspect]
     Indication: ILL-DEFINED DISORDER
     Dates: start: 20050501, end: 20050101
  3. SOLU-MEDROL [Suspect]
     Indication: ILL-DEFINED DISORDER
     Dosage: SEE IMAGE
     Dates: start: 20050101
  4. SOLU-MEDROL [Suspect]
     Indication: ILL-DEFINED DISORDER
     Dosage: SEE IMAGE
     Dates: start: 20050501
  5. DOXYCYCLINE [Suspect]
     Indication: STAPHYLOCOCCAL INFECTION
     Dates: start: 20050101, end: 20050101
  6. LEVAQUIN [Suspect]
     Indication: STAPHYLOCOCCAL INFECTION
     Dates: start: 20050101, end: 20050101
  7. POTASSIUM CHLORIDE [Concomitant]
  8. HYDROCHLOROTHIAZIDE [Concomitant]
  9. ALBUTEROL [Concomitant]
  10. ATROVENT [Concomitant]
  11. ADVAIR DISKUS 100/50 [Concomitant]

REACTIONS (18)
  - BLOOD POTASSIUM INCREASED [None]
  - CARDIOMEGALY [None]
  - CONDITION AGGRAVATED [None]
  - COUGH [None]
  - DRUG HYPERSENSITIVITY [None]
  - DRUG INEFFECTIVE [None]
  - DYSPHAGIA [None]
  - DYSPNOEA [None]
  - GENERAL PHYSICAL HEALTH DETERIORATION [None]
  - ILL-DEFINED DISORDER [None]
  - LUNG INFECTION [None]
  - MENTAL DISORDER [None]
  - PHARYNGEAL OEDEMA [None]
  - PHARYNGITIS [None]
  - RESPIRATORY DISORDER [None]
  - STAPHYLOCOCCAL INFECTION [None]
  - TENDON DISORDER [None]
  - URTICARIA [None]
